FAERS Safety Report 11318163 (Version 1)
Quarter: 2015Q3

REPORT INFORMATION
  Report Type: Spontaneous
  Country: BR (occurrence: BR)
  Receive Date: 20150728
  Receipt Date: 20150728
  Transmission Date: 20151125
  Serious: Yes (Other)
  Sender: FDA-Public Use
  Company Number: BR-ROXANE LABORATORIES, INC.-2015-RO-01216RO

PATIENT
  Age: 48 Year
  Sex: Male

DRUGS (5)
  1. HYDROCHLOROTHIAZIDE. [Suspect]
     Active Substance: HYDROCHLOROTHIAZIDE
     Indication: HYPERTENSION
     Dosage: 50 MG
     Route: 065
  2. PAROXETINE [Suspect]
     Active Substance: PAROXETINE\PAROXETINE HYDROCHLORIDE
     Indication: PSYCHOTIC DISORDER
     Dosage: 20 MG
     Route: 065
  3. PAROXETINE [Suspect]
     Active Substance: PAROXETINE\PAROXETINE HYDROCHLORIDE
     Indication: POST-TRAUMATIC STRESS DISORDER
  4. RISPERIDONE. [Suspect]
     Active Substance: RISPERIDONE
     Indication: PSYCHOTIC DISORDER
     Dosage: 3 MG
     Route: 065
  5. RISPERIDONE. [Suspect]
     Active Substance: RISPERIDONE
     Indication: POST-TRAUMATIC STRESS DISORDER

REACTIONS (5)
  - Electrocardiogram T wave amplitude decreased [Not Recovered/Not Resolved]
  - Drug interaction [Unknown]
  - Electrocardiogram QT prolonged [Not Recovered/Not Resolved]
  - Hypokalaemia [Unknown]
  - Electrocardiogram U-wave abnormality [Not Recovered/Not Resolved]
